FAERS Safety Report 23627124 (Version 1)
Quarter: 2024Q1

REPORT INFORMATION
  Report Type: Report from Study
  Country: US (occurrence: US)
  Receive Date: 20240313
  Receipt Date: 20240313
  Transmission Date: 20240410
  Serious: No
  Sender: FDA-Public Use
  Company Number: US-SPRINGWORKS THERAPEUTICS-SW-001294

PATIENT
  Age: 46 Year
  Sex: Female

DRUGS (3)
  1. NIROGACESTAT [Suspect]
     Active Substance: NIROGACESTAT
     Indication: Connective tissue neoplasm
     Dosage: 150 MILLIGRAM, BID
     Route: 048
     Dates: start: 20231223
  2. NIROGACESTAT [Suspect]
     Active Substance: NIROGACESTAT
     Indication: Soft tissue neoplasm
     Dosage: 50 MILLIGRAM, BID (50 MG TAB, BID)
     Route: 048
  3. NIROGACESTAT [Suspect]
     Active Substance: NIROGACESTAT
     Dosage: 100 MILLIGRAM, BID (2X 50MG TAB, BID)

REACTIONS (4)
  - Skin burning sensation [Unknown]
  - Rash [Unknown]
  - Headache [Unknown]
  - Fatigue [Unknown]

NARRATIVE: CASE EVENT DATE: 20240102
